FAERS Safety Report 6297729-X (Version None)
Quarter: 2009Q3

REPORT INFORMATION
  Report Type: 
  Country: None (occurrence: None)
  Receive Date: 20090805
  Receipt Date: 20090729
  Transmission Date: 20100115
  Serious: Yes (Life-Threatening, Hospitalization)
  Sender: FDA-Public Use
  Company Number: JP-ROCHE-645383

PATIENT
  Sex: Male
  Weight: 25 kg

DRUGS (1)
  1. ROCEPHIN [Suspect]
     Indication: ERYTHEMA MULTIFORME
     Dosage: DRUG NAME REPORTED AS: ROCEPHIN 1 GRAM BAG.
     Route: 041
     Dates: start: 20090714, end: 20090715

REACTIONS (1)
  - RESPIRATORY FAILURE [None]
